FAERS Safety Report 7438821-3 (Version None)
Quarter: 2011Q2

REPORT INFORMATION
  Report Type: 
  Country: None (occurrence: None)
  Receive Date: 20110426
  Receipt Date: 20110414
  Transmission Date: 20111010
  Serious: Yes (Hospitalization)
  Sender: FDA-Public Use
  Company Number: US-SANOFI-AVENTIS-2011SA024275

PATIENT
  Age: 77 Year
  Sex: Male

DRUGS (4)
  1. OPTICLICK [Suspect]
     Indication: TYPE 2 DIABETES MELLITUS
  2. METFORMIN [Concomitant]
  3. LANTUS [Suspect]
     Indication: TYPE 2 DIABETES MELLITUS
     Dosage: 34 UNITS IN THE MORNING AND 12 UNITS BEFORE BED
     Route: 058
  4. NOVOLOG [Concomitant]
     Dosage: DOSE:6 UNIT(S)

REACTIONS (1)
  - FALL [None]
